FAERS Safety Report 24010046 (Version 1)
Quarter: 2024Q2

REPORT INFORMATION
  Report Type: Spontaneous
  Country: US (occurrence: US)
  Receive Date: 20240625
  Receipt Date: 20240625
  Transmission Date: 20240716
  Serious: Yes (Hospitalization, Other)
  Sender: FDA-Public Use
  Company Number: US-EPICPHARMA-US-2024EPCLIT00742

PATIENT
  Age: 20 Month
  Sex: Male

DRUGS (1)
  1. TIZANIDINE HYDROCHLORIDE [Suspect]
     Active Substance: TIZANIDINE HYDROCHLORIDE
     Indication: Product used for unknown indication
     Dosage: 12-16 MG
     Route: 048

REACTIONS (8)
  - Depressed level of consciousness [Recovered/Resolved]
  - Apnoea [Recovered/Resolved]
  - Sinus bradycardia [Recovered/Resolved]
  - Miosis [Recovered/Resolved]
  - Pupillary reflex impaired [Recovered/Resolved]
  - Mental status changes [Recovered/Resolved]
  - Somnolence [Recovered/Resolved]
  - Intentional overdose [Unknown]
